FAERS Safety Report 9681077 (Version 1)
Quarter: 2013Q4

REPORT INFORMATION
  Report Type: Spontaneous
  Country: US (occurrence: None)
  Receive Date: 20131108
  Receipt Date: 20131108
  Transmission Date: 20140711
  Serious: Yes (Hospitalization)
  Sender: FDA-Public Use
  Company Number: None

PATIENT
  Age: 61 Year
  Sex: Female
  Weight: 72.58 kg

DRUGS (1)
  1. ALBUTEROL SULFATE [Suspect]
     Indication: DYSPNOEA
     Route: 055
     Dates: start: 20131014, end: 20131015

REACTIONS (3)
  - Aspiration [None]
  - Poor quality drug administered [None]
  - Dyspnoea [None]
